FAERS Safety Report 9411066 (Version 2)
Quarter: 2013Q3

REPORT INFORMATION
  Report Type: Report from Study
  Country: BE (occurrence: BE)
  Receive Date: 20130720
  Receipt Date: 20130927
  Transmission Date: 20140515
  Serious: Yes (Hospitalization)
  Sender: FDA-Public Use
  Company Number: BE-ASTRAZENECA-2013SE12767

PATIENT
  Age: 29679 Day
  Sex: Female
  Weight: 74 kg

DRUGS (74)
  1. STUDY PROCEDURE [Suspect]
     Indication: ABDOMINAL INFECTION
     Route: 065
  2. MEROPENEM [Suspect]
     Indication: ABDOMINAL INFECTION
     Route: 042
     Dates: start: 20130211, end: 20130222
  3. DURATEARS [Concomitant]
     Dosage: APP
     Dates: start: 20130211, end: 20130212
  4. HUMULINE [Concomitant]
     Dates: start: 20130212, end: 20130213
  5. ACTRAPID HM [Concomitant]
     Dates: start: 20130214, end: 20130215
  6. ACTRAPID HM [Concomitant]
     Dosage: IU
     Dates: start: 20130227, end: 20130227
  7. MOVICOL [Concomitant]
     Dosage: SACH
     Dates: start: 20130201, end: 20130201
  8. NOBIRETIC 5/12.5 [Concomitant]
     Dates: start: 20130223, end: 20130225
  9. STEOVIT/D3 1000/800 [Concomitant]
     Dates: start: 20121001, end: 20130207
  10. EFEDRINE [Concomitant]
     Indication: DIVERTICULAR PERFORATION
     Dates: start: 20130212, end: 20130212
  11. HYPNOMIDATE [Concomitant]
     Indication: DIVERTICULAR PERFORATION
     Dates: start: 20130211, end: 20130211
  12. ESMERON [Concomitant]
     Indication: DIVERTICULAR PERFORATION
     Dates: start: 20130211, end: 20130211
  13. ESMERON [Concomitant]
     Indication: DIVERTICULAR PERFORATION
     Dates: start: 20130211, end: 20130212
  14. CELOCURINE [Concomitant]
     Indication: DIVERTICULAR PERFORATION
     Dates: start: 20130211, end: 20130211
  15. SUFENTANIL [Concomitant]
     Indication: DIVERTICULAR PERFORATION
     Dates: start: 20130211, end: 20130211
  16. SUFENTANIL [Concomitant]
     Indication: DIVERTICULAR PERFORATION
     Dates: start: 20130211, end: 20130211
  17. SUFENTANIL [Concomitant]
     Indication: DIVERTICULAR PERFORATION
     Dates: start: 20130212, end: 20130212
  18. FRESH FROZEN PLASMA [Concomitant]
     Indication: TOXICITY TO VARIOUS AGENTS
     Dates: start: 20130212, end: 20130212
  19. ZESTRIL [Concomitant]
     Dates: start: 20110501, end: 20130207
  20. ZESTRIL [Concomitant]
     Dates: start: 20130213, end: 20130222
  21. ZESTRIL [Concomitant]
     Dates: start: 20130223
  22. NOBITEN [Concomitant]
     Dates: start: 20090701, end: 20130207
  23. NOBITEN [Concomitant]
     Dates: start: 20130214, end: 20130222
  24. NOBITEN [Concomitant]
     Dates: start: 20130226
  25. PANTOMED [Concomitant]
     Dates: start: 20110411, end: 20130207
  26. PANTOMED [Concomitant]
     Dates: start: 20130214, end: 20130302
  27. XANAX [Concomitant]
     Dates: start: 20121001, end: 20130207
  28. XANAX [Concomitant]
     Dates: start: 20130213, end: 20130221
  29. FOSAMAX [Concomitant]
     Dates: start: 20121001, end: 20130207
  30. SINTROM [Concomitant]
     Dates: start: 20120701, end: 20130207
  31. ZOLPIDEM [Concomitant]
     Dates: start: 20121201, end: 20130207
  32. FLEET ENEMA [Concomitant]
     Indication: ABDOMINAL INFECTION
     Dates: start: 20130201, end: 20130201
  33. KONAKION [Concomitant]
     Dates: start: 20130212, end: 20130212
  34. ZANTAC [Concomitant]
     Indication: PROPHYLAXIS
     Dates: start: 20130212, end: 20130212
  35. ZANTAC [Concomitant]
     Indication: PROPHYLAXIS
     Dates: start: 20130213, end: 20130213
  36. PARACETAMOL [Concomitant]
     Indication: PROPHYLAXIS
     Dates: start: 20130212, end: 20130212
  37. PARACETAMOL [Concomitant]
     Indication: PROPHYLAXIS
     Dates: start: 20130215, end: 20130215
  38. VITAMIN B1 [Concomitant]
     Indication: PROPHYLAXIS
     Dates: start: 20130215, end: 20130215
  39. VITAMIN B1 [Concomitant]
     Indication: PROPHYLAXIS
     Dates: start: 20130216, end: 20130220
  40. VITAMIN B1 [Concomitant]
     Indication: PROPHYLAXIS
     Dates: start: 20130222, end: 20130303
  41. AMLOR [Concomitant]
     Dates: start: 20130216, end: 20130217
  42. AMLOR [Concomitant]
     Dates: start: 20130217, end: 20130217
  43. COMBIVENT [Concomitant]
     Indication: PROPHYLAXIS
     Dates: start: 20130216, end: 20130216
  44. COMBIVENT [Concomitant]
     Indication: PROPHYLAXIS
     Dates: start: 20130217, end: 20130217
  45. COMBIVENT [Concomitant]
     Indication: PROPHYLAXIS
     Dates: start: 20130218, end: 20130227
  46. LASIX [Concomitant]
     Dates: start: 20130212, end: 20130212
  47. LASIX [Concomitant]
     Dates: start: 20130216, end: 20130220
  48. CEDOCARD [Concomitant]
     Dates: start: 20130221, end: 20130221
  49. CEDOCARD [Concomitant]
     Dates: start: 20130223, end: 20130223
  50. MORPHINE HCL [Concomitant]
     Dates: start: 20130221, end: 20130221
  51. CORUNO [Concomitant]
     Dates: start: 20130222, end: 20130227
  52. NESTROLAN [Concomitant]
     Dates: start: 20130222, end: 20130321
  53. CHLOROPOTASSURIL [Concomitant]
     Dates: start: 20130219, end: 20130221
  54. CHLOROPOTASSURIL [Concomitant]
     Dates: start: 20130225, end: 20130307
  55. BURINEX [Concomitant]
     Dates: start: 20130221, end: 20130221
  56. BURINEX [Concomitant]
     Dates: start: 20130223, end: 20130225
  57. DIPIDOLOR [Concomitant]
     Indication: PROPHYLAXIS
     Dates: start: 20130212, end: 20130213
  58. POTASSIUMCHLORIDE [Concomitant]
     Dates: start: 20130225, end: 20130227
  59. ENDOPEG ORAL SOLUTION [Concomitant]
     Dates: start: 20130226, end: 20130226
  60. ALDACTONE [Concomitant]
     Dates: start: 20130227
  61. XANAX RETARD [Concomitant]
     Dates: start: 20130227
  62. OLIMEL [Concomitant]
     Dates: start: 20130212, end: 20130213
  63. OLIMEL [Concomitant]
     Dates: start: 20130213, end: 20130227
  64. RED PACKED CELLS [Concomitant]
     Dates: start: 20130211, end: 20130211
  65. PPSB(PROTHROMBINCONCENTRATE) [Concomitant]
     Dates: start: 20130211, end: 20130211
  66. DESFLURANE [Concomitant]
     Dates: start: 20130211, end: 20130211
  67. FLAGYL [Concomitant]
     Indication: DIVERTICULAR PERFORATION
     Dates: start: 20130211, end: 20130211
  68. FLAGYL [Concomitant]
     Indication: DIVERTICULAR PERFORATION
     Dates: start: 20130212, end: 20130212
  69. CIPROXINE [Concomitant]
     Indication: DIVERTICULAR PERFORATION
     Dates: start: 20130211, end: 20130212
  70. TAZOCIN [Concomitant]
     Dates: start: 20130222, end: 20130222
  71. TAZOCIN [Concomitant]
     Dates: start: 20130223, end: 20130225
  72. TAZOCIN [Concomitant]
     Dates: start: 20130226, end: 20130226
  73. EFEXOR [Concomitant]
     Indication: PROPHYLAXIS
     Dates: start: 20120927, end: 20130207
  74. EFEXOR [Concomitant]
     Indication: PROPHYLAXIS
     Dates: start: 20130214, end: 20130222

REACTIONS (1)
  - Pulmonary congestion [Recovered/Resolved]
